FAERS Safety Report 9346838 (Version 1)
Quarter: 2013Q2

REPORT INFORMATION
  Report Type: Spontaneous
  Country: BR (occurrence: BR)
  Receive Date: 20130613
  Receipt Date: 20130613
  Transmission Date: 20140414
  Serious: Yes (Other)
  Sender: FDA-Public Use
  Company Number: BR-ASTRAZENECA-2013SE41619

PATIENT
  Age: 63 Year
  Sex: Male
  Weight: 78 kg

DRUGS (5)
  1. TENORETIC [Suspect]
     Indication: HYPERTENSION
     Dosage: 100+25 MG ONCE DAILY
     Route: 048
     Dates: start: 1995, end: 2007
  2. ATACAND [Suspect]
     Indication: HYPERTENSION
     Route: 048
     Dates: start: 2003
  3. ATENOL [Suspect]
     Indication: HYPERTENSION
     Dosage: DAILY
     Route: 065
     Dates: start: 2007
  4. ALDACTONE [Suspect]
     Indication: HYPERTENSION
     Route: 065
     Dates: start: 2007
  5. ALDACTONE [Suspect]
     Indication: HYPERTENSION
     Route: 065

REACTIONS (4)
  - Hyperadrenalism [Unknown]
  - Blood pressure increased [Recovered/Resolved]
  - Drug ineffective [Unknown]
  - Off label use [Not Recovered/Not Resolved]
